FAERS Safety Report 8284959-0 (Version None)
Quarter: 2012Q2

REPORT INFORMATION
  Report Type: 
  Country: None (occurrence: None)
  Receive Date: 20120413
  Receipt Date: 20120127
  Transmission Date: 20120825
  Serious: No
  Sender: FDA-Public Use
  Company Number: US-ASTRAZENECA-2012SE03003

PATIENT
  Age: 62 Year
  Sex: Male

DRUGS (3)
  1. PRILOSEC OTC [Suspect]
     Route: 048
  2. PREDNISONE TAB [Concomitant]
  3. NEXIUM [Suspect]
     Route: 048

REACTIONS (5)
  - LARYNGITIS [None]
  - BRONCHITIS [None]
  - MALAISE [None]
  - DRUG INEFFECTIVE [None]
  - VOCAL CORD INFLAMMATION [None]
